FAERS Safety Report 14599772 (Version 1)
Quarter: 2018Q1

REPORT INFORMATION
  Report Type: Spontaneous
  Country: US (occurrence: US)
  Receive Date: 20180305
  Receipt Date: 20180305
  Transmission Date: 20180509
  Serious: No
  Sender: FDA-Public Use
  Company Number: US-BAYER-2018-038972

PATIENT
  Sex: Male

DRUGS (1)
  1. MIRALAX [Suspect]
     Active Substance: POLYETHYLENE GLYCOL 3350
     Indication: PRODUCT USED FOR UNKNOWN INDICATION
     Dosage: 1/2 TEASPOON DAILY TEASPOON
     Route: 048

REACTIONS (4)
  - Glomerular filtration rate increased [Unknown]
  - Glomerular filtration rate decreased [Unknown]
  - Product use issue [Unknown]
  - Renal disorder [Unknown]
